FAERS Safety Report 11831171 (Version 1)
Quarter: 2015Q4

REPORT INFORMATION
  Report Type: Spontaneous
  Country: BR (occurrence: BR)
  Receive Date: 20151214
  Receipt Date: 20151214
  Transmission Date: 20160305
  Serious: Yes (Other)
  Sender: FDA-Public Use
  Company Number: BR-SA-2015SA208400

PATIENT
  Age: 8 Year
  Sex: Male

DRUGS (1)
  1. IMIPRAMINE [Suspect]
     Active Substance: IMIPRAMINE
     Indication: MAJOR DEPRESSION
     Route: 065

REACTIONS (3)
  - Dystonia [Recovered/Resolved]
  - Pain [Recovered/Resolved]
  - Activities of daily living impaired [Recovered/Resolved]
